FAERS Safety Report 17187667 (Version 1)
Quarter: 2019Q4

REPORT INFORMATION
  Report Type: Spontaneous
  Country: US (occurrence: US)
  Receive Date: 20191221
  Receipt Date: 20191221
  Transmission Date: 20200122
  Serious: Yes (Death, Hospitalization, Other)
  Sender: FDA-Public Use
  Company Number: US-MICRO LABS LIMITED-ML2019-03688

PATIENT
  Age: 32 Year
  Sex: Male

DRUGS (2)
  1. DIPHENHYDRAMINE HYDROCHLORIDE. [Suspect]
     Active Substance: DIPHENHYDRAMINE HYDROCHLORIDE
  2. HEROIN [Suspect]
     Active Substance: DIAMORPHINE

REACTIONS (8)
  - Acute respiratory distress syndrome [Fatal]
  - Respiratory depression [Fatal]
  - Bradypnoea [Fatal]
  - Acute lung injury [Fatal]
  - Coma [Fatal]
  - Myocardial ischaemia [Fatal]
  - Toxicity to various agents [Fatal]
  - Depressed level of consciousness [Fatal]
